FAERS Safety Report 5156190-9 (Version None)
Quarter: 2006Q4

REPORT INFORMATION
  Report Type: 
  Country: None (occurrence: None)
  Receive Date: 20061122
  Receipt Date: 20061110
  Transmission Date: 20070319
  Serious: Yes (Other)
  Sender: FDA-Public Use
  Company Number: 2006GB02042

PATIENT
  Age: 10 Year
  Sex: Female

DRUGS (1)
  1. ATENOLOL [Suspect]
     Indication: SUPRAVENTRICULAR TACHYCARDIA
     Route: 048
     Dates: start: 20030801, end: 20031001

REACTIONS (5)
  - DIZZINESS [None]
  - HYPOAESTHESIA [None]
  - HYPOTENSION [None]
  - PARAESTHESIA [None]
  - PERIPHERAL COLDNESS [None]
